FAERS Safety Report 6636455-1 (Version None)
Quarter: 2010Q1

REPORT INFORMATION
  Report Type: 
  Country: None (occurrence: None)
  Receive Date: 20100316
  Receipt Date: 20100303
  Transmission Date: 20100710
  Serious: Yes (Hospitalization)
  Sender: FDA-Public Use
  Company Number: DE-PFIZER INC-2010029430

PATIENT
  Age: 52 Year
  Sex: Female

DRUGS (4)
  1. SOLVEX [Suspect]
     Dosage: 40 DF, SINGLE
     Route: 048
     Dates: start: 20100302, end: 20100302
  2. SERTRALINE HCL [Suspect]
     Dosage: 80 DF, SINGLE
     Route: 048
     Dates: start: 20100302, end: 20100302
  3. MELPERONE HYDROCHLORIDE [Suspect]
     Dosage: 10 DF, SINGLE
     Route: 048
     Dates: start: 20100302, end: 20100302
  4. DIPYRONE TAB [Suspect]
     Dosage: 120 ML, SINGLE
     Route: 048
     Dates: start: 20100302, end: 20100302

REACTIONS (4)
  - HYPOTENSION [None]
  - MULTIPLE DRUG OVERDOSE INTENTIONAL [None]
  - SOPOR [None]
  - SUICIDE ATTEMPT [None]
